FAERS Safety Report 9825215 (Version 1)
Quarter: 2013Q4

REPORT INFORMATION
  Report Type: Spontaneous
  Country: US (occurrence: None)
  Receive Date: 20131028
  Receipt Date: 20131028
  Transmission Date: 20140711
  Serious: Yes (Other)
  Sender: FDA-Public Use
  Company Number: 2013US001099

PATIENT
  Age: 68 Year
  Sex: Male
  Weight: 81.6 kg

DRUGS (7)
  1. ICLUSIG (PONATINIB) TABLET, 45 MG [Suspect]
     Indication: ACUTE LYMPHOCYTIC LEUKAEMIA
     Route: 048
     Dates: start: 20130130, end: 20130201
  2. PROTONIX (PANTOPRAZOLE SODIUM SESQUIHYDRATE) [Concomitant]
  3. ACYCLOVIR (ACYCLOVIR) [Concomitant]
  4. ZOFRAN (ONDANSETRON) [Concomitant]
  5. SOMA (CARISOPRODOL) [Concomitant]
  6. SOTALOL (SOTALOL) [Concomitant]
  7. AUGMENTIN (AMOXICILLIN, CLAVULANIC ACID) [Concomitant]

REACTIONS (9)
  - Gastrooesophageal reflux disease [None]
  - Pain in jaw [None]
  - Gingival pain [None]
  - Pharyngeal oedema [None]
  - Somnolence [None]
  - Oropharyngeal pain [None]
  - Dry skin [None]
  - Arthralgia [None]
  - Nausea [None]
